FAERS Safety Report 7153106-0 (Version None)
Quarter: 2010Q4

REPORT INFORMATION
  Report Type: 
  Country: None (occurrence: None)
  Receive Date: 20101213
  Receipt Date: 20100813
  Transmission Date: 20110411
  Serious: Yes (Hospitalization, Other)
  Sender: FDA-Public Use
  Company Number: PHHO2010US12559

PATIENT
  Age: 53 Year
  Sex: Male

DRUGS (17)
  1. MYCOPHENOLIC ACID [Suspect]
     Dosage: 900 MG, UNK
     Route: 048
     Dates: start: 20100715
  2. MYCOPHENOLIC ACID [Suspect]
     Dosage: 900 MG, UNK
     Route: 048
     Dates: start: 20100716
  3. TYLENOL (CAPLET) [Concomitant]
     Dosage: 500 MG, UNK
     Route: 048
  4. NORVASC [Concomitant]
     Dosage: 10 MG, UNK
     Route: 048
  5. OSCAL D [Concomitant]
     Dosage: 1 DF, UNK
     Route: 048
  6. DEBROX [Concomitant]
     Dosage: 5 DROPS BOTH THE EARS
  7. CLONIDINE HCL [Concomitant]
     Dosage: 0.1 MG DAILY
     Route: 048
  8. DEXTROSE [Concomitant]
     Dosage: UNK ML, UNK
     Route: 042
  9. VITAMIN D [Concomitant]
     Dosage: 1 DF, UNK
     Route: 048
  10. PEPCID [Concomitant]
     Dosage: 20 MG, UNK
     Route: 048
  11. APRESOLINE [Concomitant]
     Dosage: 10 MG, UNK
     Route: 042
  12. NOVOLOG [Concomitant]
     Route: 058
  13. MIRALAX [Concomitant]
  14. DELTASONE [Concomitant]
     Dosage: 5 MG, UNK
     Route: 048
  15. SODIUM BICARBONATE [Concomitant]
     Dosage: 650 MG, UNK
     Route: 048
  16. SALINE [Concomitant]
     Route: 042
  17. PROGRAF [Concomitant]
     Dosage: 3 MG, UNK
     Route: 048

REACTIONS (12)
  - ANAEMIA [None]
  - BLOOD CALCIUM DECREASED [None]
  - BLOOD CHLORIDE INCREASED [None]
  - BLOOD CREATININE INCREASED [None]
  - BLOOD MAGNESIUM DECREASED [None]
  - BLOOD POTASSIUM INCREASED [None]
  - BLOOD UREA INCREASED [None]
  - DIZZINESS [None]
  - ELECTROCARDIOGRAM ABNORMAL [None]
  - LEFT VENTRICULAR HYPERTROPHY [None]
  - SCAR [None]
  - SINUS BRADYCARDIA [None]
